FAERS Safety Report 7065835-8 (Version None)
Quarter: 2010Q4

REPORT INFORMATION
  Report Type: 
  Country: None (occurrence: None)
  Receive Date: 20101027
  Receipt Date: 20101018
  Transmission Date: 20110411
  Serious: Yes (Hospitalization, Other)
  Sender: FDA-Public Use
  Company Number: CA-ABBOTT-10P-028-0675299-00

PATIENT
  Sex: Female
  Weight: 45.4 kg

DRUGS (1)
  1. HUMIRA [Suspect]
     Indication: CROHN'S DISEASE
     Route: 058
     Dates: start: 20081021, end: 20100915

REACTIONS (9)
  - ANAEMIA [None]
  - BLOOD CREATININE INCREASED [None]
  - BLOOD ELECTROLYTES INCREASED [None]
  - BLOOD MAGNESIUM DECREASED [None]
  - BLOOD URINE PRESENT [None]
  - GLOMERULOSCLEROSIS [None]
  - HAEMOGLOBIN DECREASED [None]
  - NEPHROLITHIASIS [None]
  - RENAL FAILURE [None]
